FAERS Safety Report 6279735-4 (Version None)
Quarter: 2009Q3

REPORT INFORMATION
  Report Type: 
  Country: None (occurrence: None)
  Receive Date: 20090721
  Receipt Date: 20090706
  Transmission Date: 20100115
  Serious: Yes (Hospitalization)
  Sender: FDA-Public Use
  Company Number: POMP-1000653

PATIENT
  Age: 6 Month
  Sex: Female
  Weight: 6.4 kg

DRUGS (1)
  1. MYOZYME [Suspect]
     Indication: GLYCOGEN STORAGE DISEASE TYPE II
     Dosage: INTRAVENOUS
     Route: 042
     Dates: start: 20090204, end: 20090624

REACTIONS (2)
  - HERPANGINA [None]
  - SUPERINFECTION BACTERIAL [None]
